FAERS Safety Report 25065280 (Version 1)
Quarter: 2025Q1

REPORT INFORMATION
  Report Type: Spontaneous
  Country: DE (occurrence: DE)
  Receive Date: 20250311
  Receipt Date: 20250311
  Transmission Date: 20250409
  Serious: Yes (Hospitalization, Other)
  Sender: ANI
  Company Number: DE-ANIPHARMA-2025-DE-000016

PATIENT
  Age: 75 Year
  Sex: Male

DRUGS (17)
  1. ARIMIDEX [Suspect]
     Active Substance: ANASTROZOLE
     Indication: Breast cancer
     Route: 048
     Dates: start: 20231120
  2. METOPROLOL [Concomitant]
     Active Substance: METOPROLOL
  3. DEVICE [Suspect]
     Active Substance: DEVICE
  4. LEVOTHYROXINE SODIUM [Suspect]
     Active Substance: LEVOTHYROXINE SODIUM
     Route: 048
  5. PREGABALIN [Concomitant]
     Active Substance: PREGABALIN
  6. OMEPRAZOLE [Concomitant]
     Active Substance: OMEPRAZOLE
  7. TORSEMIDE [Concomitant]
     Active Substance: TORSEMIDE
  8. METAMIZOL [Concomitant]
     Active Substance: METAMIZOLE SODIUM
  9. CALCIUM [Concomitant]
     Active Substance: CALCIUM
     Dates: start: 20250107
  10. CANDESARTAN CILEXETIL [Concomitant]
     Active Substance: CANDESARTAN CILEXETIL
  11. FASLODEX [Suspect]
     Active Substance: FULVESTRANT
     Route: 030
     Dates: start: 20240502
  12. PALBOCICLIB [Suspect]
     Active Substance: PALBOCICLIB
     Route: 048
     Dates: start: 20231120
  13. EXEMESTANE [Suspect]
     Active Substance: EXEMESTANE
     Route: 048
     Dates: start: 20240305
  14. IBUPROFEN [Concomitant]
     Active Substance: IBUPROFEN
  15. ATORVASTATIN [Concomitant]
     Active Substance: ATORVASTATIN
  16. AMLODIPINE BESYLATE [Concomitant]
     Active Substance: AMLODIPINE BESYLATE
  17. CHOLECALCIFEROL [Concomitant]
     Active Substance: CHOLECALCIFEROL

REACTIONS (1)
  - Atrial fibrillation [Recovering/Resolving]

NARRATIVE: CASE EVENT DATE: 20250127
